FAERS Safety Report 4724456-X (Version None)
Quarter: 2005Q3

REPORT INFORMATION
  Report Type: 
  Country: None (occurrence: None)
  Receive Date: 20050721
  Receipt Date: 20050711
  Transmission Date: 20060218
  Serious: Yes (Hospitalization)
  Sender: FDA-Public Use
  Company Number: 104279

PATIENT
  Age: 44 Year
  Sex: Female

DRUGS (15)
  1. HERCEPTIN [Suspect]
     Indication: BREAST CANCER
     Dosage: SEE IMAGE INTRAVENOUS
     Route: 042
  2. HERCEPTIN [Suspect]
     Indication: BREAST CANCER
     Dosage: SEE IMAGE INTRAVENOUS
     Route: 042
     Dates: start: 20020717
  3. HERCEPTIN [Suspect]
  4. DOCETAXEL (DOCETAXEL) SOLUTION FOR INJECTION [Suspect]
     Indication: BREAST CANCER
     Dosage: 120 MG, Q3W, INTRAVENOUS
     Route: 042
     Dates: start: 29920718
  5. CARBOPLATIN [Suspect]
     Indication: BREAST CANCER
     Dosage: 635 MG, Q3W, INTRAVENOUS
     Route: 042
     Dates: start: 20020718
  6. ROFECOXIB [Suspect]
  7. TAZOCIN (PIPERACILLIN SODIUM, TAZOBACTAM SODIUM) [Suspect]
  8. DEXAMETHASONE [Concomitant]
  9. ONDANSETRON (ONDANSETROM) [Concomitant]
  10. CIMETIDINE [Concomitant]
  11. BISOPROLOL FUMARATE [Concomitant]
  12. OTILONIUM BROMIDE (OTILONIUM BROMIDE) [Concomitant]
  13. ROFECOXIB [Concomitant]
  14. FLUOXETINE HCL [Concomitant]
  15. RANITIDINE [Concomitant]

REACTIONS (14)
  - ANAEMIA [None]
  - ANURIA [None]
  - BACTERAEMIA [None]
  - BLOOD UREA INCREASED [None]
  - CARDIAC FAILURE CONGESTIVE [None]
  - DIALYSIS [None]
  - ESCHERICHIA INFECTION [None]
  - FEBRILE NEUTROPENIA [None]
  - MEDICAL DEVICE COMPLICATION [None]
  - NAUSEA [None]
  - NEUTROPENIC SEPSIS [None]
  - OESOPHAGITIS [None]
  - RENAL FAILURE ACUTE [None]
  - VOMITING [None]
